FAERS Safety Report 20221567 (Version 1)
Quarter: 2021Q4

REPORT INFORMATION
  Report Type: Spontaneous
  Country: US (occurrence: US)
  Receive Date: 20211223
  Receipt Date: 20211223
  Transmission Date: 20220303
  Serious: Yes (Death, Other)
  Sender: FDA-Public Use
  Company Number: US-AMNEAL PHARMACEUTICALS-2021-AMRX-05054

PATIENT
  Age: 35 Year
  Sex: Male

DRUGS (2)
  1. ADRENACLICK [Suspect]
     Active Substance: EPINEPHRINE
     Indication: Resuscitation
     Dosage: UNK
     Route: 016
  2. VASOPRESSIN [Suspect]
     Active Substance: VASOPRESSIN
     Indication: Resuscitation
     Dosage: UNK
     Route: 016

REACTIONS (1)
  - Cardiac arrest [Fatal]
